FAERS Safety Report 7540855-5 (Version None)
Quarter: 2011Q2

REPORT INFORMATION
  Report Type: 
  Country: None (occurrence: None)
  Receive Date: 20110610
  Receipt Date: 20110603
  Transmission Date: 20111010
  Serious: Yes (Hospitalization)
  Sender: FDA-Public Use
  Company Number: US-B.I. PHARMACEUTICALS,INC./RIDGEFIELD-2011-BP-14652BP

PATIENT
  Age: 79 Year
  Sex: Female
  Weight: 63.5 kg

DRUGS (16)
  1. CLONIDINE HCL [Suspect]
     Indication: HYPERTENSION
     Dosage: 0.3 MG
     Route: 048
     Dates: start: 20090101
  2. LOVASTATIN [Concomitant]
     Indication: HYPERCHOLESTEROLAEMIA
     Dosage: 40 MG
     Route: 048
     Dates: start: 20090101
  3. DICLOFENAC SODIUM [Concomitant]
     Dosage: 75 MG
     Route: 048
     Dates: start: 20090101
  4. ALENDRONATE SODIUM [Concomitant]
     Indication: OSTEOPOROSIS
     Route: 048
     Dates: start: 20070101
  5. BETACAROTENE [Concomitant]
     Indication: SUPPLEMENTATION THERAPY
     Dates: start: 20080101
  6. FISH OIL [Concomitant]
     Dates: start: 20080101
  7. CALCIUM WITH VITAMIN D [Concomitant]
     Dates: start: 20080101
  8. BRIMONIDINE [Concomitant]
     Indication: GLAUCOMA
     Dates: start: 20060101
  9. HYDROCHLOROTHIAZIDE [Concomitant]
     Indication: HYPERTENSION
     Dosage: 25 MG
     Route: 048
     Dates: start: 20090101
  10. FESOTERODINE [Suspect]
  11. TRAMADOL HCL [Concomitant]
     Indication: SCIATICA
     Route: 048
     Dates: start: 20090101
  12. METFORMIN HCL [Concomitant]
     Indication: TYPE 2 DIABETES MELLITUS
     Dosage: 1000 MG
     Route: 048
     Dates: start: 20080101
  13. LISINOPRIL [Concomitant]
     Indication: HYPERTENSION
     Dosage: 10 MG
     Route: 048
     Dates: start: 20090101
  14. ASPIRIN [Concomitant]
     Indication: CARDIOVASCULAR EVENT PROPHYLAXIS
     Dosage: 81 MG
     Route: 048
     Dates: start: 20090101
  15. DORZOLAMIDE HYDROCHLORIDE AND TIMOLOL MALEATE [Concomitant]
     Indication: GLAUCOMA
     Dates: start: 20060101
  16. DILTIAZEM [Concomitant]
     Indication: HYPERTENSION
     Dosage: 200 MG
     Route: 048
     Dates: start: 20010101

REACTIONS (2)
  - SINUS BRADYCARDIA [None]
  - BLOOD PRESSURE INCREASED [None]
